FAERS Safety Report 7201162-3 (Version None)
Quarter: 2010Q4

REPORT INFORMATION
  Report Type: 
  Country: None (occurrence: None)
  Receive Date: 20101229
  Receipt Date: 20101220
  Transmission Date: 20110411
  Serious: No
  Sender: FDA-Public Use
  Company Number: US-BIOGENIDEC-2010BI044890

PATIENT
  Age: 73 Year
  Sex: Male

DRUGS (2)
  1. TYSABRI [Suspect]
     Indication: MULTIPLE SCLEROSIS
     Route: 042
     Dates: start: 20100315
  2. TYSABRI [Suspect]
     Route: 042
     Dates: start: 20090406, end: 20091019

REACTIONS (1)
  - GENERAL SYMPTOM [None]
